FAERS Safety Report 11166059 (Version 1)
Quarter: 2015Q2

REPORT INFORMATION
  Report Type: Spontaneous
  Country: AU (occurrence: AU)
  Receive Date: 20150604
  Receipt Date: 20150604
  Transmission Date: 20150821
  Serious: Yes (Hospitalization, Disabling)
  Sender: FDA-Public Use
  Company Number: AU-MYLANLABS-2015M1018527

PATIENT

DRUGS (2)
  1. GENTAMICIN. [Concomitant]
     Active Substance: GENTAMICIN
     Indication: CHORIORETINITIS
     Route: 065
  2. DEXAMETHASONE. [Suspect]
     Active Substance: DEXAMETHASONE
     Indication: CHORIORETINITIS
     Dosage: HE HAD RECEIVED THREE INJECTIONS OF SUBCONJUNCTIVAL DEXAMETHASONE
     Route: 057

REACTIONS (1)
  - Necrotising retinitis [Recovered/Resolved with Sequelae]
